FAERS Safety Report 9998881 (Version 3)
Quarter: 2015Q3

REPORT INFORMATION
  Report Type: Report from Study
  Country: DE (occurrence: DE)
  Receive Date: 20140312
  Receipt Date: 20150925
  Transmission Date: 20151125
  Serious: Yes (Hospitalization)
  Sender: FDA-Public Use
  Company Number: DE-ROCHE-1360073

PATIENT
  Age: 74 Year
  Sex: Female

DRUGS (9)
  1. MARCUMAR [Concomitant]
     Active Substance: PHENPROCOUMON
  2. TOCILIZUMAB [Suspect]
     Active Substance: TOCILIZUMAB
     Indication: RHEUMATOID ARTHRITIS
     Route: 065
  3. PROSTAVASIN [Concomitant]
     Indication: PERIPHERAL ARTERIAL OCCLUSIVE DISEASE
  4. VOTUM [Concomitant]
     Active Substance: OLMESARTAN MEDOXOMIL
  5. PREDNISOLON [Concomitant]
     Active Substance: PREDNISOLONE
  6. OMEPRAZOL [Concomitant]
     Active Substance: OMEPRAZOLE
  7. SIMVASTATIN. [Concomitant]
     Active Substance: SIMVASTATIN
  8. L-THYROXIN [Concomitant]
     Active Substance: LEVOTHYROXINE SODIUM
  9. TORASEMIDE [Concomitant]
     Active Substance: TORSEMIDE
     Route: 065

REACTIONS (4)
  - Angina pectoris [Recovered/Resolved]
  - Foot deformity [Not Recovered/Not Resolved]
  - Impaired healing [Unknown]
  - Pain [Unknown]

NARRATIVE: CASE EVENT DATE: 20140116
